FAERS Safety Report 24332283 (Version 3)
Quarter: 2025Q3

REPORT INFORMATION
  Report Type: Report from Study
  Country: EU (occurrence: EU)
  Receive Date: 20240918
  Receipt Date: 20250901
  Transmission Date: 20251021
  Serious: Yes (Other)
  Sender: AUROBINDO
  Company Number: EU-GRUNENTHAL-2024-124634

PATIENT
  Age: 50 Year
  Sex: Female

DRUGS (17)
  1. VENLAFAXINE [Suspect]
     Active Substance: VENLAFAXINE HYDROCHLORIDE
     Indication: Migraine prophylaxis
     Route: 048
     Dates: start: 202012
  2. AMITRIPTYLINE [Suspect]
     Active Substance: AMITRIPTYLINE
     Indication: Migraine prophylaxis
     Dosage: 75 MILLIGRAM, ONCE A DAY
     Route: 065
  3. AMITRIPTYLINE [Suspect]
     Active Substance: AMITRIPTYLINE
     Route: 065
     Dates: start: 2022
  4. BOTOX [Suspect]
     Active Substance: ONABOTULINUMTOXINA
     Indication: Product used for unknown indication
     Route: 065
     Dates: start: 2023
  5. CANDESARTAN [Suspect]
     Active Substance: CANDESARTAN
     Indication: Migraine prophylaxis
     Dosage: 16 MILLIGRAM, ONCE A DAY
     Route: 065
  6. CANDESARTAN [Suspect]
     Active Substance: CANDESARTAN
     Route: 065
     Dates: start: 2020
  7. DIHYDROERGOTAMINE [Suspect]
     Active Substance: DIHYDROERGOTAMINE
     Indication: Migraine
     Route: 042
     Dates: start: 2022
  8. ERENUMAB [Interacting]
     Active Substance: ERENUMAB
     Indication: Migraine
     Route: 065
     Dates: start: 2023
  9. FREMANEZUMAB [Suspect]
     Active Substance: FREMANEZUMAB
     Indication: Migraine
     Route: 065
     Dates: start: 202112
  10. IXPRIM [Suspect]
     Active Substance: ACETAMINOPHEN\TRAMADOL HYDROCHLORIDE
     Indication: Migraine
     Route: 065
  11. MOTILIUM [Suspect]
     Active Substance: DOMPERIDONE
     Indication: Product used for unknown indication
     Route: 065
  12. MIRTAZAPINE [Suspect]
     Active Substance: MIRTAZAPINE
     Indication: Affective disorder
     Dosage: 15 MILLIGRAM, ONCE A DAY
     Route: 065
  13. MIRTAZAPINE [Suspect]
     Active Substance: MIRTAZAPINE
     Indication: Sleep disorder
  14. PROPRANOLOL [Suspect]
     Active Substance: PROPRANOLOL HYDROCHLORIDE
     Indication: Migraine prophylaxis
     Route: 048
     Dates: start: 2023
  15. RIMEGEPANT [Interacting]
     Active Substance: RIMEGEPANT
     Indication: Migraine
     Dosage: 75 MILLIGRAM, ONCE A DAY
     Route: 065
     Dates: start: 202308
  16. TOPIRAMATE [Suspect]
     Active Substance: TOPIRAMATE
     Indication: Migraine prophylaxis
     Dosage: 50 MILLIGRAM, ONCE A DAY (25 MILLIGRAM, 2/DAY)
     Route: 048
  17. ZOMIG [Interacting]
     Active Substance: ZOLMITRIPTAN
     Indication: Migraine
     Route: 065

REACTIONS (6)
  - Coronary artery stenosis [Unknown]
  - Arteriospasm coronary [Unknown]
  - Unmasking of previously unidentified disease [Unknown]
  - Drug interaction [Unknown]
  - Therapeutic product effect incomplete [Unknown]
  - Off label use [Unknown]

NARRATIVE: CASE EVENT DATE: 20240101
